FAERS Safety Report 5446479-8 (Version None)
Quarter: 2007Q3

REPORT INFORMATION
  Report Type: 
  Country: None (occurrence: None)
  Receive Date: 20070907
  Receipt Date: 20070827
  Transmission Date: 20080115
  Serious: Yes (Hospitalization)
  Sender: FDA-Public Use
  Company Number: IT-BRISTOL-MYERS SQUIBB COMPANY-13898598

PATIENT
  Age: 69 Year
  Sex: Female

DRUGS (4)
  1. ERBITUX [Suspect]
     Route: 042
     Dates: start: 20070823, end: 20070823
  2. SOLDESAM [Concomitant]
     Dosage: DOSE- 8MG/2ML.
     Dates: start: 20070823, end: 20070823
  3. PLASIL [Concomitant]
     Dosage: DOSE- 10MG/2ML.
     Dates: start: 20070823, end: 20070823
  4. KLACID [Concomitant]
     Dates: start: 20070821, end: 20070823

REACTIONS (3)
  - ABDOMINAL PAIN UPPER [None]
  - ANGIODERMATITIS [None]
  - INFUSION RELATED REACTION [None]
